FAERS Safety Report 11645727 (Version 1)
Quarter: 2015Q4

REPORT INFORMATION
  Report Type: Spontaneous
  Country: CN (occurrence: CN)
  Receive Date: 20151020
  Receipt Date: 20151020
  Transmission Date: 20160304
  Serious: Yes (Hospitalization)
  Sender: FDA-Public Use
  Company Number: CN-ABBVIE-15P-035-1485110-00

PATIENT
  Age: 20 Year
  Sex: Male

DRUGS (1)
  1. DEPAKINE CHRONO [Suspect]
     Active Substance: VALPROATE SODIUM
     Indication: EPILEPSY
     Dosage: EXTENDED-RELEASE
     Route: 048
     Dates: start: 20150430, end: 20150508

REACTIONS (1)
  - Ammonia increased [Recovering/Resolving]

NARRATIVE: CASE EVENT DATE: 20150508
